FAERS Safety Report 11499565 (Version 2)
Quarter: 2018Q1

REPORT INFORMATION
  Report Type: Report from Study
  Country: None (occurrence: GB)
  Receive Date: 20150914
  Receipt Date: 20180327
  Transmission Date: 20180508
  Serious: Yes (Death, Hospitalization, Other)
  Sender: FDA-Public Use
  Company Number: GB-ABBVIE-15K-167-1462170-00

PATIENT
  Sex: Male

DRUGS (1)
  1. HUMIRA [Suspect]
     Active Substance: ADALIMUMAB
     Indication: RHEUMATOID ARTHRITIS
     Route: 058
     Dates: start: 20070425, end: 20140215

REACTIONS (6)
  - Non-Hodgkin^s lymphoma [Unknown]
  - Cardiogenic shock [Fatal]
  - Myocardial infarction [Fatal]
  - Coronary artery disease [Fatal]
  - Renal artery stenosis [Fatal]
  - Hodgkin^s disease [Fatal]

NARRATIVE: CASE EVENT DATE: 2014
